FAERS Safety Report 15926173 (Version 2)
Quarter: 2019Q1

REPORT INFORMATION
  Report Type: Spontaneous
  Country: US (occurrence: US)
  Receive Date: 20190205
  Receipt Date: 20190219
  Transmission Date: 20190417
  Serious: No
  Sender: FDA-Public Use
  Company Number: US-ALLERGAN-1831917US

PATIENT
  Sex: Female
  Weight: 68.93 kg

DRUGS (1)
  1. BOTOX [Suspect]
     Active Substance: ONABOTULINUMTOXINA
     Indication: MIGRAINE
     Dosage: 155 UNITS, SINGLE
     Route: 030
     Dates: start: 20180618, end: 20180618

REACTIONS (8)
  - Headache [Unknown]
  - Injection site rash [Unknown]
  - Procedural haemorrhage [Unknown]
  - Fatigue [Unknown]
  - Injection site paraesthesia [Unknown]
  - Injection site haematoma [Unknown]
  - Injection site pain [Unknown]
  - Injection site pruritus [Unknown]
